FAERS Safety Report 9871408 (Version 1)
Quarter: 2014Q1

REPORT INFORMATION
  Report Type: Spontaneous
  Country: US (occurrence: None)
  Receive Date: 20140204
  Receipt Date: 20140204
  Transmission Date: 20141002
  Serious: Yes (Other)
  Sender: FDA-Public Use
  Company Number: None

PATIENT
  Age: 62 Year
  Sex: Male
  Weight: 110 kg

DRUGS (1)
  1. PAROXETINE [Suspect]
     Indication: PRURITUS
     Route: 048
     Dates: start: 20140127, end: 20140130

REACTIONS (1)
  - Hallucination [None]
